FAERS Safety Report 5824332-5 (Version None)
Quarter: 2008Q3

REPORT INFORMATION
  Report Type: 
  Country: None (occurrence: None)
  Receive Date: 20080728
  Receipt Date: 20080717
  Transmission Date: 20090109
  Serious: Yes (Hospitalization)
  Sender: FDA-Public Use
  Company Number: US-JNJFOC-20080704816

PATIENT
  Sex: Female
  Weight: 80.74 kg

DRUGS (11)
  1. FENTANYL TRANSDERMAL SYSTEM [Suspect]
     Route: 062
  2. FENTANYL TRANSDERMAL SYSTEM [Suspect]
     Indication: BACK PAIN
     Route: 062
  3. BUSPAR [Suspect]
     Indication: DEPRESSION
     Route: 048
  4. GEODON [Suspect]
     Indication: DEPRESSION
     Route: 048
  5. LEXAPRO [Suspect]
     Indication: DEPRESSION
     Route: 048
  6. EFFEXOR XR [Concomitant]
     Indication: DEPRESSION
     Dosage: 3X 75 MG
     Route: 048
  7. CADUET [Concomitant]
     Indication: HYPERTENSION
     Route: 048
  8. PREMARIN [Concomitant]
     Indication: HORMONE REPLACEMENT THERAPY
     Route: 048
  9. NEXIUM [Concomitant]
     Indication: GASTROOESOPHAGEAL REFLUX DISEASE
     Route: 048
  10. REGLAN [Concomitant]
     Indication: GASTRIC DISORDER
     Route: 048
  11. NORVASC [Concomitant]
     Indication: HYPERTENSION
     Route: 048

REACTIONS (7)
  - ANAEMIA [None]
  - BREAKTHROUGH PAIN [None]
  - DEPRESSION [None]
  - EXOSTOSIS [None]
  - SEPSIS [None]
  - SOMNOLENCE [None]
  - WRONG TECHNIQUE IN DRUG USAGE PROCESS [None]
